FAERS Safety Report 7805241-9 (Version None)
Quarter: 2011Q4

REPORT INFORMATION
  Report Type: 
  Country: None (occurrence: None)
  Receive Date: 20111010
  Receipt Date: 20110927
  Transmission Date: 20120403
  Serious: Yes (Hospitalization)
  Sender: FDA-Public Use
  Company Number: MX-ELI_LILLY_AND_COMPANY-MX201108007036

PATIENT
  Age: 40 Year
  Sex: Female
  Weight: 100 kg

DRUGS (2)
  1. SYMBYAX [Suspect]
     Indication: SCHIZOPHRENIA
     Dosage: UNK UNK, UNKNOWN
     Route: 048
     Dates: start: 20110816
  2. LEVOTHYROXINE SODIUM [Concomitant]
     Dosage: UNK, UNKNOWN

REACTIONS (8)
  - ACUTE LUNG INJURY [None]
  - ASPIRATION BRONCHIAL [None]
  - INTENTIONAL OVERDOSE [None]
  - OFF LABEL USE [None]
  - VOMITING [None]
  - DYSPNOEA [None]
  - MOBILITY DECREASED [None]
  - SUICIDE ATTEMPT [None]
